FAERS Safety Report 6136973-9 (Version None)
Quarter: 2009Q1

REPORT INFORMATION
  Report Type: 
  Country: None (occurrence: None)
  Receive Date: 20090330
  Receipt Date: 20090318
  Transmission Date: 20090719
  Serious: Yes (Other)
  Sender: FDA-Public Use
  Company Number: US-WYE-H08636109

PATIENT
  Sex: Female
  Weight: 99.88 kg

DRUGS (9)
  1. EFFEXOR XR [Suspect]
     Indication: DEPRESSION
     Dosage: UNKNOWN
     Route: 048
     Dates: start: 20050101, end: 20080101
  2. EFFEXOR XR [Suspect]
     Dosage: DOSE DECREASED TO UNKNOWN AMOUNT
     Route: 048
     Dates: start: 20080101, end: 20080101
  3. EFFEXOR XR [Suspect]
     Dosage: DOSE UNKNOWN
     Dates: start: 20080101
  4. EFFEXOR XR [Suspect]
     Route: 048
  5. LISINOPRIL AND HYDROCHLOROTHIAZIDE [Concomitant]
     Dosage: UNKNOWN
  6. LYRICA [Concomitant]
     Dosage: 150 MG, FREQUENCY UNKNOWN
  7. ULTRAM [Concomitant]
     Dosage: UNKNOWN
  8. AMBIEN [Concomitant]
     Dosage: 10 MG, FREQUENCY UNKNOWN
  9. VICODIN [Concomitant]
     Dosage: 500 MG, FREQUENCY UNKNOWN

REACTIONS (6)
  - AFFECT LABILITY [None]
  - DRUG WITHDRAWAL SYNDROME [None]
  - FRUSTRATION [None]
  - PARANOIA [None]
  - SELF-INJURIOUS IDEATION [None]
  - SUICIDAL IDEATION [None]
